FAERS Safety Report 5126262-3 (Version None)
Quarter: 2006Q4

REPORT INFORMATION
  Report Type: 
  Country: None (occurrence: None)
  Receive Date: 20061012
  Receipt Date: 20060516
  Transmission Date: 20070319
  Serious: Yes (Hospitalization)
  Sender: FDA-Public Use
  Company Number: IT-ABBOTT-06P-083-0333254-00

PATIENT
  Sex: Male
  Weight: 63 kg

DRUGS (3)
  1. CYCLOSPORINE [Suspect]
     Indication: VASCULITIS
  2. DEFLAZACORT [Concomitant]
     Indication: DRUG USE FOR UNKNOWN INDICATION
  3. DEFLAZACORT [Concomitant]

REACTIONS (8)
  - HAEMOGLOBIN DECREASED [None]
  - HEPATOMEGALY [None]
  - LEUKOCYTOSIS [None]
  - PNEUMOCYSTIS JIROVECI PNEUMONIA [None]
  - PULMONARY FIBROSIS [None]
  - RED BLOOD CELL SEDIMENTATION RATE INCREASED [None]
  - SERUM FERRITIN DECREASED [None]
  - VASCULITIS [None]
